FAERS Safety Report 9276995 (Version 1)
Quarter: 2013Q2

REPORT INFORMATION
  Report Type: Spontaneous
  Country: CA (occurrence: CA)
  Receive Date: 20130507
  Receipt Date: 20130507
  Transmission Date: 20140414
  Serious: Yes (Other)
  Sender: FDA-Public Use
  Company Number: PHHY2013CA044496

PATIENT
  Age: 64 Year
  Sex: Female

DRUGS (1)
  1. BUFFERIN EXTRA STRENGTH [Suspect]
     Indication: PAIN

REACTIONS (4)
  - Granuloma skin [Not Recovered/Not Resolved]
  - Pyoderma [Not Recovered/Not Resolved]
  - Arthritis [Not Recovered/Not Resolved]
  - Poor quality drug administered [Unknown]
